FAERS Safety Report 15412781 (Version 2)
Quarter: 2018Q3

REPORT INFORMATION
  Report Type: Spontaneous
  Country: JP (occurrence: JP)
  Receive Date: 20180921
  Receipt Date: 20180927
  Transmission Date: 20181010
  Serious: Yes (Hospitalization)
  Sender: FDA-Public Use
  Company Number: JP-FERRINGPH-2018FE05136

PATIENT

DRUGS (4)
  1. HERBESSER [Concomitant]
     Active Substance: DILTIAZEM HYDROCHLORIDE
     Route: 048
  2. GONAX [Suspect]
     Active Substance: DEGARELIX
     Indication: PROSTATE CANCER
     Dosage: UNK MG, UNK
     Route: 030
     Dates: start: 20180911
  3. ALLOPURINOL. [Concomitant]
     Active Substance: ALLOPURINOL
     Route: 048
  4. CANDESARTAN                        /01349502/ [Concomitant]
     Active Substance: CANDESARTAN
     Route: 048

REACTIONS (2)
  - Abdominal pain [Recovered/Resolved]
  - Incorrect route of drug administration [Unknown]

NARRATIVE: CASE EVENT DATE: 20180911
